FAERS Safety Report 12615748 (Version 1)
Quarter: 2016Q3

REPORT INFORMATION
  Report Type: Spontaneous
  Country: US (occurrence: US)
  Receive Date: 20160802
  Receipt Date: 20160802
  Transmission Date: 20161109
  Serious: No
  Sender: FDA-Public Use
  Company Number: US-009507513-1607USA011570

PATIENT
  Age: 24 Year
  Sex: Female
  Weight: 104.31 kg

DRUGS (1)
  1. NEXPLANON [Suspect]
     Active Substance: ETONOGESTREL
     Dosage: DOSE/FREQUENCY REPORTED AS:68 MG EVERY 3 YEARS
     Route: 059
     Dates: start: 20140624, end: 20160725

REACTIONS (2)
  - Device kink [Recovered/Resolved]
  - No adverse event [Unknown]
